FAERS Safety Report 16344996 (Version 1)
Quarter: 2019Q2

REPORT INFORMATION
  Report Type: Report from Study
  Country: None (occurrence: CL)
  Receive Date: 20190523
  Receipt Date: 20190523
  Transmission Date: 20190711
  Serious: Yes (Other)
  Sender: FDA-Public Use
  Company Number: CL-ABBVIE-19K-034-2721148-00

PATIENT
  Sex: Female

DRUGS (2)
  1. HUMIRA [Suspect]
     Active Substance: ADALIMUMAB
     Indication: RHEUMATOID ARTHRITIS
     Route: 058
     Dates: start: 20060601
  2. LEFLUNOMIDE. [Concomitant]
     Active Substance: LEFLUNOMIDE
     Indication: RHEUMATOID ARTHRITIS

REACTIONS (10)
  - Spondylitis [Recovering/Resolving]
  - Osteosclerosis [Unknown]
  - Osteoporosis [Unknown]
  - Spinal osteoarthritis [Not Recovered/Not Resolved]
  - Spinal pain [Recovering/Resolving]
  - Cataract [Unknown]
  - Injection site pain [Unknown]
  - Intervertebral disc displacement [Not Recovered/Not Resolved]
  - Procedural pain [Recovered/Resolved]
  - Cyst [Not Recovered/Not Resolved]

NARRATIVE: CASE EVENT DATE: 201411
